FAERS Safety Report 5737092-3 (Version None)
Quarter: 2008Q2

REPORT INFORMATION
  Report Type: 
  Country: None (occurrence: None)
  Receive Date: 20080513
  Receipt Date: 20080513
  Transmission Date: 20081010
  Serious: No
  Sender: FDA-Public Use
  Company Number: None

PATIENT
  Age: 49 Year
  Sex: Female

DRUGS (1)
  1. MIRAPEX [Suspect]

REACTIONS (4)
  - ECONOMIC PROBLEM [None]
  - FEELING ABNORMAL [None]
  - GAMBLING [None]
  - IMPULSIVE BEHAVIOUR [None]
